FAERS Safety Report 5771964-9 (Version None)
Quarter: 2008Q2

REPORT INFORMATION
  Report Type: 
  Country: None (occurrence: None)
  Receive Date: 20080612
  Receipt Date: 20080612
  Transmission Date: 20081010
  Serious: Yes (Other)
  Sender: FDA-Public Use
  Company Number: None

PATIENT
  Age: 73 Year
  Sex: Female
  Weight: 66.6788 kg

DRUGS (1)
  1. PROPRANOLOL [Suspect]
     Indication: TREMOR
     Dosage: 80 MG 1 QD PO
     Route: 048
     Dates: start: 19900101, end: 19901229

REACTIONS (2)
  - THERAPEUTIC RESPONSE UNEXPECTED WITH DRUG SUBSTITUTION [None]
  - TREMOR [None]
